FAERS Safety Report 8857571 (Version 3)
Quarter: 2012Q4

REPORT INFORMATION
  Report Type: 
  Country: DE (occurrence: DE)
  Receive Date: 20121024
  Receipt Date: 20121213
  Transmission Date: 20130627
  Serious: Yes (Other)
  Sender: FDA-Public Use
  Company Number: DE-B.I. PHARMACEUTICALS,INC./RIDGEFIELD-2012-DE-02491DE

PATIENT
  Age: 70 Year
  Sex: Male
  Weight: 100 kg

DRUGS (10)
  1. PRADAXA [Suspect]
     Indication: ATRIAL FIBRILLATION
     Dosage: 300 mg
     Dates: start: 20121002, end: 20121017
  2. OMEPRAZOL [Suspect]
     Indication: DYSPEPSIA
  3. OMEPRAZOL [Suspect]
     Indication: GASTROOESOPHAGEAL REFLUX DISEASE
  4. OMEPRAZOL [Suspect]
     Indication: ABDOMINAL DISCOMFORT
  5. PANTOPRAZOL [Suspect]
     Indication: DYSPEPSIA
  6. PANTOPRAZOL [Suspect]
     Indication: GASTROOESOPHAGEAL REFLUX DISEASE
  7. PANTOPRAZOL [Suspect]
     Indication: ABDOMINAL DISCOMFORT
  8. ATACAND [Concomitant]
     Indication: HYPERTENSION
  9. BISOPROLOL [Concomitant]
     Indication: HYPERTENSION
  10. ALOPURINOL [Concomitant]
     Indication: GOUT

REACTIONS (7)
  - Angina pectoris [Recovered/Resolved]
  - Angina pectoris [Recovered/Resolved]
  - Abdominal discomfort [Recovered/Resolved]
  - Flatulence [Recovered/Resolved]
  - Gastrocardiac syndrome [Recovered/Resolved]
  - Dyspepsia [Unknown]
  - Gastrooesophageal reflux disease [Unknown]
